FAERS Safety Report 8318899-5 (Version None)
Quarter: 2012Q2

REPORT INFORMATION
  Report Type: 
  Country: None (occurrence: None)
  Receive Date: 20120426
  Receipt Date: 20120426
  Transmission Date: 20120825
  Serious: Yes (Other)
  Sender: FDA-Public Use
  Company Number: None

PATIENT
  Sex: Female
  Weight: 70.5 kg

DRUGS (2)
  1. TUBERSOL [Suspect]
     Indication: TUBERCULIN TEST
     Dosage: 0.1ML 2 TIMES ID
     Route: 023
     Dates: start: 20120406
  2. TUBERSOL [Suspect]
     Indication: TUBERCULIN TEST
     Dosage: 0.1ML 2 TIMES ID
     Route: 023
     Dates: start: 20120417

REACTIONS (2)
  - PRURITUS GENERALISED [None]
  - URTICARIA [None]
